FAERS Safety Report 9286550 (Version 1)
Quarter: 2013Q2

REPORT INFORMATION
  Report Type: Spontaneous
  Country: US (occurrence: US)
  Receive Date: 20130513
  Receipt Date: 20130513
  Transmission Date: 20140414
  Serious: Yes (Hospitalization, Other)
  Sender: FDA-Public Use
  Company Number: US-ASTRAZENECA-2013SE31415

PATIENT
  Age: 61 Year
  Sex: Female

DRUGS (4)
  1. TOPROL XL [Suspect]
     Route: 048
  2. ASPIRIN [Concomitant]
  3. PLAVIX [Concomitant]
     Dosage: 300 ONCE
  4. LOVENOX [Concomitant]

REACTIONS (2)
  - Acute myocardial infarction [Unknown]
  - Chest pain [Unknown]
